FAERS Safety Report 11876602 (Version 2)
Quarter: 2016Q1

REPORT INFORMATION
  Report Type: Spontaneous
  Country: RO (occurrence: RO)
  Receive Date: 20151229
  Receipt Date: 20160118
  Transmission Date: 20160526
  Serious: Yes (Hospitalization, Other)
  Sender: FDA-Public Use
  Company Number: RO-BRISTOL-MYERS SQUIBB COMPANY-BMS-2015-088975

PATIENT
  Age: 58 Year
  Sex: Male

DRUGS (5)
  1. SPRYCEL [Suspect]
     Active Substance: DASATINIB
     Dosage: 50 MG, QD
     Route: 048
     Dates: start: 20150727
  2. SPRYCEL [Suspect]
     Active Substance: DASATINIB
     Dosage: 50 MG, 3 TIMES/WK
     Route: 048
     Dates: start: 201509
  3. SPRYCEL [Suspect]
     Active Substance: DASATINIB
     Dosage: 50 MG, QD
     Route: 048
     Dates: start: 20150511, end: 20150630
  4. SPRYCEL [Suspect]
     Active Substance: DASATINIB
     Indication: CHRONIC MYELOID LEUKAEMIA
     Dosage: 100 MG, QD
     Route: 048
     Dates: start: 201408
  5. SPRYCEL [Suspect]
     Active Substance: DASATINIB
     Dosage: 100 MG, 3 TIMES/WK
     Route: 048
     Dates: start: 201509

REACTIONS (3)
  - Pleural effusion [Unknown]
  - Basophil count increased [Unknown]
  - Pleurisy [Unknown]

NARRATIVE: CASE EVENT DATE: 201504
